FAERS Safety Report 6278061-7 (Version None)
Quarter: 2009Q3

REPORT INFORMATION
  Report Type: 
  Country: None (occurrence: None)
  Receive Date: 20090722
  Receipt Date: 20090716
  Transmission Date: 20100115
  Serious: Yes (Other)
  Sender: FDA-Public Use
  Company Number: PHHO2009FR06884

PATIENT
  Sex: Female

DRUGS (2)
  1. RAD 666 RAD+TAB [Suspect]
     Indication: BREAST CANCER METASTATIC
     Dosage: 10 MG, QD
     Route: 048
     Dates: start: 20081223
  2. TAMOXIFEN COMP-TAM+ [Suspect]
     Indication: BREAST CANCER METASTATIC
     Dosage: 20 MG, QD
     Route: 048
     Dates: start: 20081223

REACTIONS (3)
  - ARTHRALGIA [None]
  - DEEP VEIN THROMBOSIS [None]
  - OEDEMA [None]
